FAERS Safety Report 7508136-3 (Version None)
Quarter: 2011Q2

REPORT INFORMATION
  Report Type: 
  Country: None (occurrence: None)
  Receive Date: 20110527
  Receipt Date: 20110513
  Transmission Date: 20111010
  Serious: Yes (Other)
  Sender: FDA-Public Use
  Company Number: US-BAYER-201021023NA

PATIENT
  Age: 26 Year
  Sex: Female
  Weight: 120.18 kg

DRUGS (14)
  1. PHENTERMINE [Concomitant]
     Indication: WEIGHT DECREASED
  2. CLARITHROMYCIN [Concomitant]
  3. ACETAMINOPHEN [Concomitant]
     Indication: PAIN
     Dosage: 500 MG, Q4HR
     Route: 048
     Dates: start: 20090409
  4. PROMETHAZINE [Concomitant]
     Indication: VOMITING
  5. ACETAMINOPHEN [Concomitant]
     Dosage: 2 DF, PRN
     Route: 048
  6. PROMETHAZINE [Concomitant]
     Indication: NAUSEA
     Dosage: 25 MG, QID
     Route: 048
     Dates: start: 20090409
  7. YAZ [Suspect]
     Indication: ACNE
  8. IBUPROFEN [Concomitant]
     Dosage: 200 MG, PRN
     Route: 048
  9. NAPROXEN (ALEVE) [Concomitant]
     Dosage: 4 DF, PRN
     Route: 048
  10. HYDROCODONE BITARTRATE [Concomitant]
     Indication: PAIN
     Dosage: 5 MG, Q4HR
     Route: 048
     Dates: start: 20090409
  11. CIPROFLOXACIN [Concomitant]
     Indication: URINARY TRACT INFECTION
     Dosage: 500 MG, BID
     Route: 048
     Dates: start: 20090409
  12. PRILOSEC [Concomitant]
     Route: 048
  13. YAZ [Suspect]
     Indication: CONTRACEPTION
     Dosage: UNK
     Route: 048
     Dates: start: 20080801, end: 20090501
  14. PHENERGAN HCL [Concomitant]

REACTIONS (9)
  - CHOLECYSTITIS [None]
  - ABDOMINAL PAIN UPPER [None]
  - PAIN [None]
  - DISCOMFORT [None]
  - ABDOMINAL PAIN [None]
  - CHOLECYSTITIS ACUTE [None]
  - GALLBLADDER POLYP [None]
  - NAUSEA [None]
  - CHOLELITHIASIS [None]
